FAERS Safety Report 10992276 (Version 1)
Quarter: 2015Q2

REPORT INFORMATION
  Report Type: Report from Study
  Country: BR (occurrence: BR)
  Receive Date: 20150406
  Receipt Date: 20150406
  Transmission Date: 20150821
  Serious: Yes (Other)
  Sender: FDA-Public Use
  Company Number: PHHY2015BR038155

PATIENT
  Age: 86 Year
  Sex: Female
  Weight: 63 kg

DRUGS (5)
  1. PURAN [Suspect]
     Active Substance: LEVOTHYROXINE SODIUM
     Indication: PRODUCT USED FOR UNKNOWN INDICATION
     Dosage: 1 DF (75MG), QD
     Route: 065
  2. OSCAL [Suspect]
     Active Substance: CALCIUM CARBONATE
     Indication: PRODUCT USED FOR UNKNOWN INDICATION
     Route: 065
  3. EXELON PATCH [Suspect]
     Active Substance: RIVASTIGMINE
     Indication: DEMENTIA ALZHEIMER^S TYPE
     Dosage: 1 DF, QD
     Route: 062
  4. PURAN [Suspect]
     Active Substance: LEVOTHYROXINE SODIUM
     Dosage: 1 DF (88MG), QD
     Route: 065
  5. ENDOFOLIN [Suspect]
     Active Substance: FOLIC ACID
     Indication: PRODUCT USED FOR UNKNOWN INDICATION
     Route: 065

REACTIONS (3)
  - Dengue fever [Recovering/Resolving]
  - Memory impairment [Unknown]
  - Reading disorder [Unknown]
